FAERS Safety Report 5299783-0 (Version None)
Quarter: 2007Q2

REPORT INFORMATION
  Report Type: 
  Country: None (occurrence: None)
  Receive Date: 20070417
  Receipt Date: 20070406
  Transmission Date: 20071010
  Serious: Yes (Hospitalization)
  Sender: FDA-Public Use
  Company Number: JP-MERCK-0703USA03527

PATIENT
  Age: 73 Year
  Sex: Female
  Weight: 58 kg

DRUGS (7)
  1. HYZAAR [Suspect]
     Indication: HYPERTENSION
     Route: 048
     Dates: start: 20070214, end: 20070301
  2. COZAAR [Suspect]
     Route: 048
  3. MEVALOTIN [Suspect]
     Route: 048
     Dates: end: 20070306
  4. ARTIST [Suspect]
     Route: 048
     Dates: end: 20070306
  5. NORVASC [Suspect]
     Route: 048
     Dates: end: 20070306
  6. GASMOTIN [Suspect]
     Route: 048
     Dates: end: 20070306
  7. DIMETHICONE [Suspect]
     Route: 048
     Dates: end: 20070306

REACTIONS (1)
  - RHABDOMYOLYSIS [None]
